FAERS Safety Report 11788547 (Version 1)
Quarter: 2015Q4

REPORT INFORMATION
  Report Type: Spontaneous
  Country: US (occurrence: None)
  Receive Date: 20151130
  Receipt Date: 20151130
  Transmission Date: 20160305
  Serious: Yes (Life-Threatening, Other)
  Sender: FDA-Public Use
  Company Number: None

PATIENT
  Age: 40 Year
  Sex: Female
  Weight: 52.16 kg

DRUGS (4)
  1. TETRACYCLINE TETRACYCLINE 500 MG [Suspect]
     Active Substance: TETRACYCLINE
     Indication: DERMATITIS
     Dosage: 3 TO FIVE MONTHS
     Route: 048
  2. L GLUTAMINE [Concomitant]
     Active Substance: GLUTAMINE
  3. PROBIOTICS [Concomitant]
     Active Substance: PROBIOTICS NOS
  4. LEXITHYROCINE [Concomitant]

REACTIONS (13)
  - Anxiety [None]
  - Aura [None]
  - Intestinal haemorrhage [None]
  - Clostridium difficile infection [None]
  - Migraine [None]
  - Helicobacter infection [None]
  - Palpitations [None]
  - Gastrointestinal disorder [None]
  - Depressed mood [None]
  - Large intestinal stenosis [None]
  - Fungal infection [None]
  - Stress [None]
  - Social problem [None]
